FAERS Safety Report 22634065 (Version 1)
Quarter: 2023Q2

REPORT INFORMATION
  Report Type: Spontaneous
  Country: GB (occurrence: GB)
  Receive Date: 20230623
  Receipt Date: 20230623
  Transmission Date: 20230722
  Serious: Yes (Hospitalization, Other)
  Sender: FDA-Public Use
  Company Number: GB-PHARMVIT-4556-3352-ER23-RN644

PATIENT
  Age: 65 Year
  Sex: Male

DRUGS (1)
  1. PREDNISOLONE [Suspect]
     Active Substance: PREDNISOLONE
     Indication: Product used for unknown indication
     Dosage: ADDITIONAL INFO: ROUTE:ORAL,
     Route: 050

REACTIONS (3)
  - Insomnia [Unknown]
  - Mood swings [Unknown]
  - Pancreatitis acute [Unknown]
